FAERS Safety Report 8582618 (Version 3)
Quarter: 2012Q4

REPORT INFORMATION
  Report Type: 
  Country: US (occurrence: US)
  Receive Date: 20120529
  Receipt Date: 20121128
  Transmission Date: 20130627
  Serious: Yes (Hospitalization, Other)
  Sender: FDA-Public Use
  Company Number: PHEH2012US008023

PATIENT
  Sex: Male

DRUGS (2)
  1. GLEEVEC [Suspect]
     Indication: CHRONIC MYELOID LEUKAEMIA
     Dosage: 200 mg, QD
     Route: 048
     Dates: start: 20070814
  2. GLEEVEC [Suspect]
     Dosage: 400 mg, QD
     Route: 048
     Dates: start: 20120404

REACTIONS (2)
  - Renal failure [Unknown]
  - Haemoptysis [Unknown]
